FAERS Safety Report 12294443 (Version 1)
Quarter: 2016Q2

REPORT INFORMATION
  Report Type: Spontaneous
  Country: US (occurrence: None)
  Receive Date: 20160421
  Receipt Date: 20160421
  Transmission Date: 20160815
  Serious: No
  Sender: FDA-Public Use
  Company Number: None

PATIENT
  Age: 48 Year
  Sex: Female
  Weight: 68.95 kg

DRUGS (1)
  1. LEVOFLOXACIN 500MG TABLETS WALGREENS [Suspect]
     Active Substance: LEVOFLOXACIN
     Indication: BACTERIAL INFECTION
     Dosage: 500 MG 10 PILLS ONCE DAILY MOUTH
     Route: 048
     Dates: start: 20160104, end: 20160417

REACTIONS (3)
  - Presyncope [None]
  - Tongue discolouration [None]
  - Contusion [None]

NARRATIVE: CASE EVENT DATE: 20160418
